FAERS Safety Report 16562430 (Version 3)
Quarter: 2020Q2

REPORT INFORMATION
  Report Type: Report from Study
  Country: US (occurrence: US)
  Receive Date: 20190711
  Receipt Date: 20200514
  Transmission Date: 20200713
  Serious: Yes (Other)
  Sender: FDA-Public Use
  Company Number: PHEH2019US028996

PATIENT
  Age: 55 Year
  Sex: Female

DRUGS (5)
  1. ENTRESTO [Suspect]
     Active Substance: SACUBITRIL\VALSARTAN
     Dosage: UNK
     Route: 065
     Dates: start: 2019
  2. ENTRESTO [Suspect]
     Active Substance: SACUBITRIL\VALSARTAN
     Indication: PRODUCT USED FOR UNKNOWN INDICATION
     Dosage: UNK
     Route: 048
  3. ENTRESTO [Suspect]
     Active Substance: SACUBITRIL\VALSARTAN
     Dosage: 1 DF
     Route: 065
  4. ENTRESTO [Suspect]
     Active Substance: SACUBITRIL\VALSARTAN
     Dosage: 1.5 DF
     Route: 065
  5. ENTRESTO [Suspect]
     Active Substance: SACUBITRIL\VALSARTAN
     Dosage: 2 DF
     Route: 065

REACTIONS (8)
  - Wrong technique in product usage process [Unknown]
  - Anxiety [Unknown]
  - Chronic left ventricular failure [Unknown]
  - Inappropriate schedule of product administration [Unknown]
  - Ejection fraction decreased [Unknown]
  - Drug ineffective [Unknown]
  - Atrial fibrillation [Not Recovered/Not Resolved]
  - Pulse pressure decreased [Unknown]

NARRATIVE: CASE EVENT DATE: 202004
